FAERS Safety Report 25379936 (Version 1)
Quarter: 2025Q2

REPORT INFORMATION
  Report Type: Spontaneous
  Country: US (occurrence: US)
  Receive Date: 20250530
  Receipt Date: 20250530
  Transmission Date: 20250717
  Serious: No
  Sender: ABBVIE
  Company Number: US-ABBVIE-6297403

PATIENT
  Age: 54 Year
  Sex: Female
  Weight: 101 kg

DRUGS (3)
  1. INFED [Suspect]
     Active Substance: IRON DEXTRAN
     Indication: Product used for unknown indication
     Route: 042
  2. SINGULAIR [Concomitant]
     Active Substance: MONTELUKAST SODIUM
     Indication: Product used for unknown indication
     Dates: start: 20250410
  3. PEPCID [Concomitant]
     Active Substance: FAMOTIDINE
     Indication: Product used for unknown indication
     Dates: start: 20250410

REACTIONS (4)
  - Dyspnoea [Recovering/Resolving]
  - Swelling face [Recovering/Resolving]
  - Drug hypersensitivity [Unknown]
  - Back pain [Recovering/Resolving]

NARRATIVE: CASE EVENT DATE: 20250410
